FAERS Safety Report 5333228-7 (Version None)
Quarter: 2007Q2

REPORT INFORMATION
  Report Type: 
  Country: None (occurrence: None)
  Receive Date: 20070524
  Receipt Date: 20070517
  Transmission Date: 20071010
  Serious: Yes (Other)
  Sender: FDA-Public Use
  Company Number: PHBS2007BE08351

PATIENT
  Age: 54 Year
  Sex: Male

DRUGS (3)
  1. CALCIUM CHLORIDE [Concomitant]
  2. VITAMIN D [Concomitant]
  3. ZOMETA [Suspect]
     Indication: METASTASIS
     Dosage: 4 MG EVERY 3-4 WEEKS
     Dates: start: 20050705, end: 20070416

REACTIONS (4)
  - BONE DISORDER [None]
  - OSTEONECROSIS [None]
  - PAIN IN JAW [None]
  - TOOTH EXTRACTION [None]
